FAERS Safety Report 14726401 (Version 7)
Quarter: 2019Q3

REPORT INFORMATION
  Report Type: Spontaneous
  Country: US (occurrence: US)
  Receive Date: 20180406
  Receipt Date: 20190710
  Transmission Date: 20191004
  Serious: No
  Sender: FDA-Public Use
  Company Number: US-BIOGEN-2018BI00550101

PATIENT
  Age: 63 Year
  Sex: Female

DRUGS (12)
  1. ZINBRYTA [Suspect]
     Active Substance: DACLIZUMAB
     Indication: RELAPSING-REMITTING MULTIPLE SCLEROSIS
     Route: 050
     Dates: start: 20170508, end: 201803
  2. ZINBRYTA [Suspect]
     Active Substance: DACLIZUMAB
     Route: 050
     Dates: start: 2017, end: 20180205
  3. FISH OIL [Concomitant]
     Active Substance: FISH OIL
     Indication: PRODUCT USED FOR UNKNOWN INDICATION
     Route: 050
  4. DULOXETINE. [Concomitant]
     Active Substance: DULOXETINE
     Indication: PRODUCT USED FOR UNKNOWN INDICATION
     Route: 050
  5. VITAMIN D3 [Concomitant]
     Active Substance: CHOLECALCIFEROL
     Indication: PRODUCT USED FOR UNKNOWN INDICATION
     Route: 050
  6. BACLOFEN. [Concomitant]
     Active Substance: BACLOFEN
     Indication: PRODUCT USED FOR UNKNOWN INDICATION
     Route: 050
  7. AMPYRA [Concomitant]
     Active Substance: DALFAMPRIDINE
     Indication: MULTIPLE SCLEROSIS
     Route: 050
     Dates: start: 201009
  8. FLUTICASONE. [Concomitant]
     Active Substance: FLUTICASONE
     Indication: PRODUCT USED FOR UNKNOWN INDICATION
     Route: 050
  9. LOSARTAN. [Concomitant]
     Active Substance: LOSARTAN
     Indication: PRODUCT USED FOR UNKNOWN INDICATION
     Route: 050
  10. FLAXSEED [Concomitant]
     Active Substance: FLAX SEED
     Indication: PRODUCT USED FOR UNKNOWN INDICATION
     Route: 050
  11. PRAMIPEXOLE. [Concomitant]
     Active Substance: PRAMIPEXOLE
     Indication: PRODUCT USED FOR UNKNOWN INDICATION
     Route: 050
  12. ZINBRYTA [Suspect]
     Active Substance: DACLIZUMAB
     Route: 050
     Dates: start: 201706, end: 201803

REACTIONS (20)
  - Skin lesion [Not Recovered/Not Resolved]
  - Rash pruritic [Recovered/Resolved]
  - Sinusitis [Recovered/Resolved]
  - Immune-mediated adverse reaction [Unknown]
  - Emotional distress [Unknown]
  - Alopecia [Not Recovered/Not Resolved]
  - Multiple sclerosis [Not Recovered/Not Resolved]
  - Gait disturbance [Not Recovered/Not Resolved]
  - Nasal pruritus [Not Recovered/Not Resolved]
  - Skin infection [Not Recovered/Not Resolved]
  - Depression [Not Recovered/Not Resolved]
  - Thyroid mass [Not Recovered/Not Resolved]
  - Nausea [Not Recovered/Not Resolved]
  - Dermatitis [Recovered/Resolved]
  - Drug ineffective [Not Recovered/Not Resolved]
  - Anxiety [Unknown]
  - Lymphadenopathy [Not Recovered/Not Resolved]
  - Nasal disorder [Not Recovered/Not Resolved]
  - Nasal congestion [Unknown]
  - Eczema [Recovered/Resolved]

NARRATIVE: CASE EVENT DATE: 201711
